FAERS Safety Report 10260412 (Version 1)
Quarter: 2014Q2

REPORT INFORMATION
  Report Type: Report from Study
  Country: CA (occurrence: CA)
  Receive Date: 20140625
  Receipt Date: 20140625
  Transmission Date: 20141212
  Serious: Yes (Other)
  Sender: FDA-Public Use
  Company Number: CA-ABBVIE-14P-028-1250826-00

PATIENT
  Sex: Female
  Weight: 58.11 kg

DRUGS (2)
  1. HUMIRA [Suspect]
     Indication: PRODUCT USED FOR UNKNOWN INDICATION
     Route: 058
     Dates: start: 20080423
  2. IMURAN [Concomitant]
     Indication: CROHN^S DISEASE

REACTIONS (3)
  - Intestinal perforation [Recovered/Resolved]
  - Migraine [Not Recovered/Not Resolved]
  - Migraine [Unknown]
